FAERS Safety Report 8276130-3 (Version None)
Quarter: 2012Q2

REPORT INFORMATION
  Report Type: 
  Country: None (occurrence: None)
  Receive Date: 20120412
  Receipt Date: 20120402
  Transmission Date: 20120825
  Serious: Yes (Other)
  Sender: FDA-Public Use
  Company Number: DK-JNJFOC-20120212391

PATIENT
  Sex: Female
  Weight: 51.5 kg

DRUGS (1)
  1. REMICADE [Suspect]
     Indication: CROHN'S DISEASE
     Dosage: 400 MG WITH 7-8 WEEKS INTERVAL STRENGTH: 100 MG
     Route: 042
     Dates: start: 20100623, end: 20120104

REACTIONS (2)
  - PERONEAL NERVE PALSY [None]
  - ARTHRALGIA [None]
